FAERS Safety Report 5802560-2 (Version None)
Quarter: 2008Q3

REPORT INFORMATION
  Report Type: 
  Country: None (occurrence: None)
  Receive Date: 20080708
  Receipt Date: 20080625
  Transmission Date: 20090109
  Serious: Yes (Hospitalization, Other)
  Sender: FDA-Public Use
  Company Number: PHHY2008ES12006

PATIENT
  Age: 71 Year
  Sex: Female

DRUGS (6)
  1. TRILEPTAL [Suspect]
     Dosage: UNK
     Route: 048
     Dates: start: 20070101, end: 20071006
  2. VOLTAREN [Suspect]
     Indication: BACK PAIN
     Dosage: UNK
     Route: 048
     Dates: start: 20070801, end: 20071006
  3. SINEMET [Suspect]
     Indication: PARKINSON'S DISEASE
     Dosage: UNK
     Route: 048
     Dates: start: 20070101, end: 20071006
  4. MYOLASTAN [Suspect]
     Indication: PARKINSON'S DISEASE
     Dosage: UNK
     Route: 048
     Dates: start: 20070101, end: 20071006
  5. NOLOTIL [Suspect]
     Indication: BACK PAIN
     Dosage: UNK
     Route: 048
     Dates: start: 20070801, end: 20071006
  6. IBUPROFEN [Suspect]

REACTIONS (10)
  - ALANINE AMINOTRANSFERASE INCREASED [None]
  - BILIRUBIN CONJUGATED [None]
  - BIOPSY LIVER ABNORMAL [None]
  - CHOLESTASIS [None]
  - DRUG TOXICITY [None]
  - GRANULOMATOUS LIVER DISEASE [None]
  - HEPATIC STEATOSIS [None]
  - HEPATITIS TOXIC [None]
  - PYREXIA [None]
  - TOXIC EPIDERMAL NECROLYSIS [None]
